FAERS Safety Report 7559393-9 (Version None)
Quarter: 2011Q2

REPORT INFORMATION
  Report Type: 
  Country: None (occurrence: None)
  Receive Date: 20110621
  Receipt Date: 20110616
  Transmission Date: 20111010
  Serious: Yes (Hospitalization, Other)
  Sender: FDA-Public Use
  Company Number: US-PFIZER INC-2011044459

PATIENT
  Sex: Female

DRUGS (18)
  1. LEXAPRO [Concomitant]
     Indication: DEPRESSION
     Dosage: 20 MG, UNK
     Dates: start: 20040101, end: 20090101
  2. LEXAPRO [Concomitant]
     Indication: ANXIETY
  3. TRAZODONE [Concomitant]
     Indication: INSOMNIA
     Dosage: UNK
     Dates: start: 20040101
  4. REQUIP [Concomitant]
     Dosage: UNK
     Dates: start: 20070101
  5. CHANTIX [Suspect]
     Indication: SMOKING CESSATION THERAPY
     Dosage: ONE STARTER PACK AND FOUR CONTINUING MONTHLY PACKS
     Dates: start: 20080104, end: 20090401
  6. CLONAZEPAM [Concomitant]
     Indication: ANXIETY
  7. CYCLOBENZAPRINE [Concomitant]
     Indication: MUSCLE RELAXANT THERAPY
     Dosage: UNK
     Dates: start: 20040101
  8. CLARITIN [Concomitant]
     Indication: HYPERSENSITIVITY
     Dosage: UNK
     Dates: start: 20070101, end: 20090101
  9. MECLIZINE [Concomitant]
     Indication: DIZZINESS
     Dosage: 25 MG, UNK
     Dates: start: 20040101
  10. TOPROL-XL [Concomitant]
     Indication: BLOOD PRESSURE
     Dosage: UNK
     Dates: start: 20060101
  11. CLONAZEPAM [Concomitant]
     Indication: DEPRESSION
     Dosage: UNK
     Dates: start: 20030101
  12. LYRICA [Concomitant]
     Indication: NEURALGIA
     Dosage: UNK
     Dates: start: 20070101, end: 20090101
  13. TRIAMTERENE AND HYDROCHLOROTHIAZID ^HARRIS^ [Concomitant]
     Indication: BLOOD PRESSURE
     Dosage: UNK
     Dates: start: 20070101, end: 20090101
  14. LEVAQUIN [Concomitant]
     Indication: INFECTION
     Dosage: UNK
     Dates: start: 20060101, end: 20090101
  15. ACETAMINOPHEN AND HYDROCODONE BITARTRATE [Concomitant]
     Indication: PAIN
     Dosage: UNK
     Dates: start: 20040101
  16. VYTORIN [Concomitant]
     Indication: BLOOD CHOLESTEROL
     Dosage: UNK
     Dates: start: 20070101, end: 20090101
  17. TARKA [Concomitant]
     Indication: BLOOD PRESSURE
     Dosage: UNK
     Dates: start: 20030101, end: 20090101
  18. TRAZODONE [Concomitant]
     Indication: RESTLESS LEGS SYNDROME

REACTIONS (4)
  - LOSS OF CONSCIOUSNESS [None]
  - DEPRESSION [None]
  - COGNITIVE DISORDER [None]
  - ANXIETY [None]
